FAERS Safety Report 21634043 (Version 1)
Quarter: 2022Q4

REPORT INFORMATION
  Report Type: Spontaneous
  Country: IN (occurrence: IN)
  Receive Date: 20221123
  Receipt Date: 20221123
  Transmission Date: 20230113
  Serious: Yes (Other)
  Sender: FDA-Public Use
  Company Number: IN-PFIZER INC-PV202200105411

PATIENT
  Age: 70 Year
  Sex: Male

DRUGS (1)
  1. LORLATINIB [Suspect]
     Active Substance: LORLATINIB
     Indication: Lung cancer metastatic
     Dosage: 100 MG, 1X/DAY
     Route: 048

REACTIONS (6)
  - Encephalopathy [Unknown]
  - Haemoptysis [Unknown]
  - Dysphonia [Unknown]
  - Vocal cord paralysis [Unknown]
  - Neoplasm progression [Unknown]
  - Pleural thickening [Recovering/Resolving]
